FAERS Safety Report 5142977-5 (Version None)
Quarter: 2006Q4

REPORT INFORMATION
  Report Type: 
  Country: None (occurrence: None)
  Receive Date: 20061103
  Receipt Date: 20061023
  Transmission Date: 20070319
  Serious: Yes (Other)
  Sender: FDA-Public Use
  Company Number: CA-JNJFOC-20061005177

PATIENT

DRUGS (1)
  1. DURAGESIC-100 [Suspect]
     Indication: DRUG USE FOR UNKNOWN INDICATION

REACTIONS (2)
  - OEDEMA MOUTH [None]
  - SWELLING FACE [None]
